FAERS Safety Report 8303530-5 (Version None)
Quarter: 2012Q2

REPORT INFORMATION
  Report Type: 
  Country: None (occurrence: None)
  Receive Date: 20120423
  Receipt Date: 20120413
  Transmission Date: 20120825
  Serious: Yes (Disabling)
  Sender: FDA-Public Use
  Company Number: NO-PFIZER INC-2012097255

PATIENT
  Age: 50 Year
  Sex: Male

DRUGS (7)
  1. CORDARONE [Suspect]
     Indication: ATRIAL FIBRILLATION
     Dosage: UNK
     Dates: start: 20041101, end: 20050101
  2. TAMBOCOR [Concomitant]
     Dosage: UNK
     Dates: start: 20120101
  3. DIGITOXIN [Concomitant]
     Dosage: UNK
  4. ASPIRIN [Concomitant]
     Dosage: UNK
     Dates: start: 20120101
  5. ISOPTIN [Concomitant]
     Dosage: UNK
  6. OXAZEPAM [Concomitant]
     Indication: TIC
     Dosage: UNK
  7. WARFARIN [Concomitant]
     Dosage: UNK

REACTIONS (2)
  - TIC [None]
  - MUSCLE TWITCHING [None]
